FAERS Safety Report 17374827 (Version 1)
Quarter: 2020Q1

REPORT INFORMATION
  Report Type: Spontaneous
  Country: US (occurrence: US)
  Receive Date: 20200204
  Receipt Date: 20200204
  Transmission Date: 20200409
  Serious: Yes (Life-Threatening, Hospitalization)
  Sender: FDA-Public Use
  Company Number: None

PATIENT
  Age: 86 Year
  Sex: Female

DRUGS (1)
  1. WARFARIN [Suspect]
     Active Substance: WARFARIN

REACTIONS (6)
  - Electrolyte imbalance [None]
  - Faeces discoloured [None]
  - Confusional state [None]
  - Asthenia [None]
  - Loss of consciousness [None]
  - Metabolic acidosis [None]

NARRATIVE: CASE EVENT DATE: 20190913
